FAERS Safety Report 13301331 (Version 1)
Quarter: 2017Q1

REPORT INFORMATION
  Report Type: Spontaneous
  Country: US (occurrence: US)
  Receive Date: 20170306
  Receipt Date: 20170306
  Transmission Date: 20170428
  Serious: Yes (Other)
  Sender: FDA-Public Use
  Company Number: None

PATIENT
  Age: 66 Year
  Sex: Male
  Weight: 85.5 kg

DRUGS (8)
  1. ARMODAFINIL. [Suspect]
     Active Substance: ARMODAFINIL
     Indication: FATIGUE
  2. ARMODAFINIL. [Concomitant]
     Active Substance: ARMODAFINIL
  3. FISH OIL [Concomitant]
     Active Substance: FISH OIL
  4. ARMODAFINIL. [Suspect]
     Active Substance: ARMODAFINIL
     Indication: MIGRAINE
  5. VERAPAMIL [Concomitant]
     Active Substance: VERAPAMIL HYDROCHLORIDE
  6. ASPIRIN. [Concomitant]
     Active Substance: ASPIRIN
  7. MULTIVITAMIN [Concomitant]
     Active Substance: VITAMINS
  8. WELLBUTRIN [Concomitant]
     Active Substance: BUPROPION HYDROCHLORIDE

REACTIONS (2)
  - Drug effect decreased [None]
  - Product substitution issue [None]

NARRATIVE: CASE EVENT DATE: 20170227
